FAERS Safety Report 4320511-7 (Version None)
Quarter: 2004Q1

REPORT INFORMATION
  Report Type: 
  Country: None (occurrence: None)
  Receive Date: 20040317
  Receipt Date: 20040305
  Transmission Date: 20041129
  Serious: No
  Sender: FDA-Public Use
  Company Number: 04P-150-0250799-00

PATIENT
  Age: 52 Year
  Sex: Female

DRUGS (1)
  1. MERIDIA [Suspect]
     Dosage: 15 MG, 1 IN 1 D, PER ORAL
     Route: 048
     Dates: start: 20030301, end: 20040201

REACTIONS (2)
  - EMBOLISM [None]
  - PAIN IN EXTREMITY [None]
